FAERS Safety Report 4646681-9 (Version None)
Quarter: 2005Q2

REPORT INFORMATION
  Report Type: 
  Country: None (occurrence: None)
  Receive Date: 20050427
  Receipt Date: 20050329
  Transmission Date: 20051028
  Serious: Yes (Disabling)
  Sender: FDA-Public Use
  Company Number: PHNU2005DE01472

PATIENT
  Sex: Male

DRUGS (1)
  1. VOLTAREN [Suspect]
     Indication: BACK PAIN
     Dates: start: 19940501, end: 19941101

REACTIONS (2)
  - GLOMERULONEPHRITIS MEMBRANOUS [None]
  - NEPHROTIC SYNDROME [None]
